FAERS Safety Report 20376804 (Version 3)
Quarter: 2022Q2

REPORT INFORMATION
  Report Type: Spontaneous
  Country: JP (occurrence: JP)
  Receive Date: 20220125
  Receipt Date: 20220603
  Transmission Date: 20220721
  Serious: Yes (Hospitalization, Other)
  Sender: FDA-Public Use
  Company Number: JP-JAZZ-2022-JP-000556

PATIENT
  Age: 67 Year
  Sex: Male
  Weight: 60.6 kg

DRUGS (8)
  1. DEFITELIO [Suspect]
     Active Substance: DEFIBROTIDE SODIUM
     Indication: Venoocclusive liver disease
     Dosage: 25 MG/KG/24 HOURS
     Route: 042
     Dates: start: 20211225, end: 20211228
  2. DEFITELIO [Suspect]
     Active Substance: DEFIBROTIDE SODIUM
     Dosage: 25 MG/KG/24 HOURS
     Route: 042
     Dates: start: 20220101, end: 20220102
  3. DEFITELIO [Suspect]
     Active Substance: DEFIBROTIDE SODIUM
     Dosage: 25 MG/KG/24 HOURS
     Route: 042
     Dates: start: 20220107, end: 20220111
  4. HEPARIN SODIUM [Suspect]
     Active Substance: HEPARIN SODIUM
     Indication: Product used for unknown indication
     Dosage: 25 MG/KG/24 HOURS
  5. HEPARIN SODIUM [Suspect]
     Active Substance: HEPARIN SODIUM
     Dosage: 25 MG/KG/24 HOURS
  6. PLATELETS [Concomitant]
     Active Substance: HUMAN PLATELET, ALLOGENIC
     Indication: Puncture site haemorrhage
     Dosage: UNK
     Dates: start: 20211228
  7. MENATETRENONE [Concomitant]
     Active Substance: MENATETRENONE
     Indication: Puncture site haemorrhage
     Dosage: UNK
     Dates: start: 20220104
  8. FRESH FROZEN PLASMA [Concomitant]
     Active Substance: HUMAN PLASMA
     Indication: Puncture site haemorrhage
     Dosage: UNK
     Dates: start: 20210104

REACTIONS (4)
  - Activated partial thromboplastin time prolonged [Recovering/Resolving]
  - Purpura [Recovered/Resolved]
  - Puncture site haemorrhage [Recovered/Resolved]
  - Off label use [Unknown]

NARRATIVE: CASE EVENT DATE: 20211225
